FAERS Safety Report 9218118 (Version 1)
Quarter: 2013Q2

REPORT INFORMATION
  Report Type: Spontaneous
  Country: DE (occurrence: DE)
  Receive Date: 20130408
  Receipt Date: 20130408
  Transmission Date: 20140414
  Serious: Yes (Disabling, Other)
  Sender: FDA-Public Use
  Company Number: DE-GLAXOSMITHKLINE-D0079326B

PATIENT
  Sex: Male
  Weight: 1.9 kg

DRUGS (8)
  1. LAMOTRIGINE [Suspect]
     Indication: EPILEPSY
     Dosage: 100MG FOUR TIMES PER DAY
     Route: 064
     Dates: start: 20110216, end: 20120425
  2. FOLIC ACID [Concomitant]
     Indication: PROPHYLAXIS OF NEURAL TUBE DEFECT
     Dosage: .4MG PER DAY
     Route: 064
  3. CELESTAN [Concomitant]
     Indication: MATERNAL THERAPY TO ENHANCE FOETAL LUNG MATURITY
     Route: 064
     Dates: start: 20120228, end: 20120229
  4. UTROGEST [Concomitant]
     Indication: SHORTENED CERVIX
     Dosage: 200MG PER DAY
     Route: 064
     Dates: start: 20120229, end: 20120320
  5. IBUPROFEN [Concomitant]
     Indication: PAIN
     Route: 064
  6. NIFEHEXAL [Concomitant]
     Indication: TOCOLYSIS
     Route: 064
     Dates: end: 20120320
  7. ATOSIBAN [Concomitant]
     Indication: TOCOLYSIS
     Route: 064
     Dates: start: 20120229, end: 20120229
  8. FRAGMIN P [Concomitant]
     Indication: THROMBOSIS PROPHYLAXIS
     Route: 064
     Dates: start: 20120229, end: 20120320

REACTIONS (4)
  - Transposition of the great vessels [Not Recovered/Not Resolved]
  - Patent ductus arteriosus [Not Recovered/Not Resolved]
  - Atrial septal defect [Not Recovered/Not Resolved]
  - Foetal exposure during pregnancy [Unknown]
